FAERS Safety Report 6579245-0 (Version None)
Quarter: 2010Q1

REPORT INFORMATION
  Report Type: 
  Country: None (occurrence: None)
  Receive Date: 20100212
  Receipt Date: 20100204
  Transmission Date: 20100710
  Serious: Yes (Hospitalization)
  Sender: FDA-Public Use
  Company Number: IT-PFIZER INC-2010015998

PATIENT
  Age: 55 Year
  Sex: Female

DRUGS (2)
  1. ZAVEDOS [Suspect]
     Indication: ACUTE MYELOID LEUKAEMIA
     Dosage: 16 MG DAILY
     Route: 042
     Dates: start: 20090522, end: 20090524
  2. ARACYTIN [Suspect]
     Indication: ACUTE MYELOID LEUKAEMIA
     Dosage: 318 MG DAILY
     Route: 042
     Dates: start: 20090522, end: 20090528

REACTIONS (2)
  - CELLULITIS [None]
  - PNEUMONIA FUNGAL [None]
